FAERS Safety Report 4309722-4 (Version None)
Quarter: 2004Q1

REPORT INFORMATION
  Report Type: 
  Country: None (occurrence: None)
  Receive Date: 20040301
  Receipt Date: 20040220
  Transmission Date: 20041129
  Serious: Yes (Death)
  Sender: FDA-Public Use
  Company Number: US-JNJFOC-20040204999

PATIENT
  Age: 74 Year
  Sex: Female

DRUGS (9)
  1. INFLIXIMAB (INFLIXIMAB, RECOMBINANT) LYOPHILIZED POWDER [Suspect]
     Indication: RHEUMATOID ARTHRITIS
     Dosage: INTRAVENOUS
     Route: 042
     Dates: start: 20021120, end: 20030617
  2. METHOTREXATE [Concomitant]
  3. CAPTOPRIL [Concomitant]
  4. FOSAMAX [Concomitant]
  5. PHENOBARBITAL TAB [Concomitant]
  6. HYDROCHLOROTHIAZIDE [Concomitant]
  7. DIGOXIN [Concomitant]
  8. WARFARIN SODIUM [Concomitant]
  9. CALCIUM (CALCIUM) [Concomitant]

REACTIONS (1)
  - LUNG NEOPLASM MALIGNANT [None]
